FAERS Safety Report 8017534-3 (Version None)
Quarter: 2011Q4

REPORT INFORMATION
  Report Type: 
  Country: None (occurrence: None)
  Receive Date: 20111228
  Receipt Date: 20111228
  Transmission Date: 20120403
  Serious: Yes (Disabling, Other)
  Sender: FDA-Public Use
  Company Number: None

PATIENT
  Age: 69 Year
  Sex: Female
  Weight: 78.4723 kg

DRUGS (1)
  1. PREDNISONE [Suspect]
     Indication: BACK PAIN
     Dosage: 2 SHOTS ^ONE LONG LASTING 2 TABS 3X DAY X 2 DAY ORALLY : 3 TABS 3 DAY 2 TB 2 DAY 1 TAB 2 DA 2 REFILL
     Dates: start: 20110304, end: 20110325

REACTIONS (8)
  - DYSSTASIA [None]
  - ARTHRALGIA [None]
  - BACK PAIN [None]
  - NECK PAIN [None]
  - MUSCULOSKELETAL PAIN [None]
  - X-RAY ABNORMAL [None]
  - CONDITION AGGRAVATED [None]
  - ABASIA [None]
